FAERS Safety Report 4345348-4 (Version None)
Quarter: 2004Q2

REPORT INFORMATION
  Report Type: 
  Country: None (occurrence: None)
  Receive Date: 20040420
  Receipt Date: 20040405
  Transmission Date: 20050107
  Serious: Yes (Hospitalization)
  Sender: FDA-Public Use
  Company Number: S04-USA-02066-01

PATIENT
  Age: 78 Year
  Sex: Male

DRUGS (7)
  1. NAMENDA [Suspect]
     Indication: DEMENTIA
     Dates: start: 20040319, end: 20040325
  2. TOPROL-XL [Concomitant]
  3. ZOCOR [Concomitant]
  4. ACCUPRIL [Concomitant]
  5. LASIX [Concomitant]
  6. POTASSIUM CHLORIDE [Concomitant]
  7. DIGOXIN [Concomitant]

REACTIONS (11)
  - ABDOMINAL DISTENSION [None]
  - ABDOMINAL PAIN LOWER [None]
  - ASTHENIA [None]
  - ATAXIA [None]
  - BLOOD CREATININE INCREASED [None]
  - BLOOD GLUCOSE INCREASED [None]
  - DIARRHOEA [None]
  - FALL [None]
  - HYPERHIDROSIS [None]
  - PCO2 DECREASED [None]
  - URINARY TRACT OBSTRUCTION [None]
